FAERS Safety Report 15759569 (Version 1)
Quarter: 2018Q4

REPORT INFORMATION
  Report Type: Spontaneous
  Country: FR (occurrence: FR)
  Receive Date: 20181226
  Receipt Date: 20181226
  Transmission Date: 20190205
  Serious: Yes (Hospitalization)
  Sender: FDA-Public Use
  Company Number: FR-TEVA-2018-FR-990493

PATIENT
  Age: 88 Year
  Sex: Female

DRUGS (9)
  1. BISOPROLOL (FUMARATE ACIDE DE) [Concomitant]
     Active Substance: BISOPROLOL FUMARATE
     Dosage: 2.5 MILLIGRAM DAILY;
     Route: 048
  2. PREVISCAN 20 MG, COMPRIM? S?CABLE [Concomitant]
     Active Substance: FLUINDIONE
     Route: 048
     Dates: end: 20180906
  3. IGNATIA AMARA BOIRON [Concomitant]
     Dosage: 10 DOSAGE FORMS DAILY;
     Route: 048
  4. IPERTEN 10 MG, COMPRIM? [Concomitant]
     Dosage: 1 DOSAGE FORMS DAILY;
     Route: 048
     Dates: end: 20180906
  5. FUROSEMIDE. [Concomitant]
     Active Substance: FUROSEMIDE
     Dosage: 40 MILLIGRAM DAILY;
     Route: 048
     Dates: start: 20180904
  6. AMIODARONE [Suspect]
     Active Substance: AMIODARONE
     Indication: ARRHYTHMIA
     Dosage: 50 MILLIGRAM DAILY;
     Route: 048
     Dates: end: 20180906
  7. LEVOTHYROX 100 MICROGRAMMES, COMPRIM? S?CABLE [Concomitant]
     Active Substance: LEVOTHYROXINE SODIUM
     Dosage: 1 DOSAGE FORMS DAILY;
     Route: 048
  8. ZOPICLONE [Concomitant]
     Active Substance: ZOPICLONE
     Dosage: 7.5 MILLIGRAM DAILY;
     Route: 048
     Dates: start: 20180904
  9. ZYMAD 80 000 UI, SOLUTION BUVABLE EN AMPOULE [Concomitant]
     Active Substance: CHOLECALCIFEROL
     Route: 048

REACTIONS (1)
  - Lung disorder [Recovering/Resolving]

NARRATIVE: CASE EVENT DATE: 20180906
